FAERS Safety Report 6065103-7 (Version None)
Quarter: 2009Q1

REPORT INFORMATION
  Report Type: 
  Country: None (occurrence: None)
  Receive Date: 20090204
  Receipt Date: 20081231
  Transmission Date: 20090719
  Serious: No
  Sender: FDA-Public Use
  Company Number: US-BAYER-200910016BCC

PATIENT
  Age: 80 Year
  Sex: Female
  Weight: 91 kg

DRUGS (10)
  1. ALEVE (CAPLET) [Suspect]
     Indication: ARTHRITIS
     Dosage: UNIT DOSE: 220 MG
     Dates: start: 20081222, end: 20081230
  2. VYTORIN [Concomitant]
  3. PANTOPRAZOLE [Concomitant]
  4. SINGULAIR [Concomitant]
  5. FLUOXETINE HCL [Concomitant]
  6. ATENOLOL [Concomitant]
  7. BENAZEPRIL HYDROCHLORIDE [Concomitant]
  8. LEVETIRACETAM [Concomitant]
  9. LIPOFLAVONOID [Concomitant]
  10. NATURE'S BOUNTY CALCIUM MAGNESIUM [Concomitant]

REACTIONS (1)
  - OEDEMA PERIPHERAL [None]
